FAERS Safety Report 10176525 (Version 3)
Quarter: 2014Q2

REPORT INFORMATION
  Report Type: Spontaneous
  Country: US (occurrence: US)
  Receive Date: 20140516
  Receipt Date: 20140625
  Transmission Date: 20141212
  Serious: Yes (Hospitalization, Other)
  Sender: FDA-Public Use
  Company Number: US-SA-2014SA062322

PATIENT
  Age: 84 Year
  Sex: Female

DRUGS (7)
  1. MULTAQ [Suspect]
     Indication: ATRIAL FIBRILLATION
     Route: 048
     Dates: start: 201002
  2. CALTRATE [Concomitant]
     Route: 048
  3. CRESTOR [Concomitant]
     Indication: BLOOD CHOLESTEROL INCREASED
     Route: 048
  4. METOPROLOL TARTRATE [Concomitant]
     Indication: CARDIAC DISORDER
     Dates: start: 2012
  5. LUTEIN [Concomitant]
     Dosage: 228 MG, 200 UNIT, 5 MG, 0.8 MG
     Route: 048
  6. WARFARIN [Concomitant]
     Indication: ANTICOAGULANT THERAPY
     Dosage: AS DIRECTED EXTERNALLY MONITORED
     Dates: start: 2013
  7. AMOXICILLIN [Concomitant]
     Dates: start: 20140331, end: 20140331

REACTIONS (4)
  - Hospitalisation [Recovered/Resolved]
  - Accident [Unknown]
  - Fall [Unknown]
  - Onychomadesis [Not Recovered/Not Resolved]
